FAERS Safety Report 8069841-6 (Version None)
Quarter: 2012Q1

REPORT INFORMATION
  Report Type: 
  Country: None (occurrence: None)
  Receive Date: 20120125
  Receipt Date: 20120125
  Transmission Date: 20120608
  Serious: Yes (Life-Threatening, Hospitalization, Other)
  Sender: FDA-Public Use
  Company Number: None

PATIENT
  Age: 30 Year
  Sex: Female
  Weight: 58.059 kg

DRUGS (1)
  1. NORGESTIMATE AND ETHINYL ESTRADIOL [Suspect]
     Dosage: 1 EVERYDAY AT THE SAME TIME

REACTIONS (9)
  - DECREASED APPETITE [None]
  - FEELING ABNORMAL [None]
  - FATIGUE [None]
  - PANIC ATTACK [None]
  - IMPAIRED WORK ABILITY [None]
  - CONFUSIONAL STATE [None]
  - MALAISE [None]
  - ECONOMIC PROBLEM [None]
  - ACTIVITIES OF DAILY LIVING IMPAIRED [None]
